FAERS Safety Report 7802265-2 (Version None)
Quarter: 2011Q4

REPORT INFORMATION
  Report Type: 
  Country: None (occurrence: None)
  Receive Date: 20111007
  Receipt Date: 20111004
  Transmission Date: 20120403
  Serious: Yes (Death, Hospitalization, Other)
  Sender: FDA-Public Use
  Company Number: US-JNJFOC-20111001952

PATIENT
  Age: 90 Year
  Sex: Male

DRUGS (6)
  1. ONCOVIN [Suspect]
     Indication: PRIMARY EFFUSION LYMPHOMA
     Route: 065
  2. DOXORUBICIN HCL [Suspect]
     Route: 042
  3. PREDNISONE [Suspect]
     Indication: PRIMARY EFFUSION LYMPHOMA
     Route: 065
  4. DOXORUBICIN HCL [Suspect]
     Indication: PRIMARY EFFUSION LYMPHOMA
     Route: 042
  5. NEULASTA [Suspect]
     Indication: PROPHYLAXIS
     Route: 065
  6. CYCLOSPORINE [Suspect]
     Indication: PRIMARY EFFUSION LYMPHOMA
     Route: 065

REACTIONS (10)
  - INFECTION [None]
  - DEPRESSED LEVEL OF CONSCIOUSNESS [None]
  - RENAL IMPAIRMENT [None]
  - CONFUSIONAL STATE [None]
  - IMMUNE SYSTEM DISORDER [None]
  - SEPSIS [None]
  - SEPTIC SHOCK [None]
  - NEUTROPHILIA [None]
  - CELLULITIS [None]
  - HEPATIC FUNCTION ABNORMAL [None]
